FAERS Safety Report 8858559 (Version 1)
Quarter: 2012Q4

REPORT INFORMATION
  Report Type: 
  Country: MX (occurrence: MX)
  Receive Date: 20121024
  Receipt Date: 20121024
  Transmission Date: 20130627
  Serious: Yes (Disabling, Other)
  Sender: FDA-Public Use
  Company Number: MX-PFIZER INC-2012265355

PATIENT
  Age: 79 Year
  Sex: Female
  Weight: 58 kg

DRUGS (5)
  1. NORVAS [Suspect]
     Indication: BLOOD PRESSURE INCREASED
     Dosage: 5 mg, 1x/day
     Route: 048
     Dates: start: 2002
  2. EBIXA [Concomitant]
     Indication: DEPRESSION
     Dosage: 2 DF, 1x/day
     Route: 048
     Dates: start: 1999
  3. HALDOL [Concomitant]
     Indication: FEELING OF RELAXATION
     Dosage: 10 drops in the night and 2 drops in the morning
     Route: 048
     Dates: start: 1996, end: 20120807
  4. KYNEX [Concomitant]
     Indication: FEELING OF RELAXATION
     Dosage: 0.5 DF, 1x/day
     Route: 048
     Dates: start: 1996, end: 20120806
  5. NEUPAX [Concomitant]
     Indication: DEPRESSION
     Dosage: 2 mg, 1x/day
     Route: 048
     Dates: start: 1996

REACTIONS (7)
  - Immobile [Not Recovered/Not Resolved]
  - Mastication disorder [Not Recovered/Not Resolved]
  - VIIth nerve paralysis [Unknown]
  - Wrong technique in drug usage process [Unknown]
  - Oedema peripheral [Unknown]
  - Dental caries [Unknown]
  - Pyrexia [Unknown]
